FAERS Safety Report 4421381-9 (Version None)
Quarter: 2004Q3

REPORT INFORMATION
  Report Type: 
  Country: None (occurrence: None)
  Receive Date: 20040719
  Receipt Date: 20040422
  Transmission Date: 20050211
  Serious: No
  Sender: FDA-Public Use
  Company Number: 2004210778US

PATIENT

DRUGS (8)
  1. INSPRA [Suspect]
     Dosage: 12.5; 25 MG
  2. TRANDOLAPRIL (TRANDOLAPRIL) [Concomitant]
  3. LASIX [Concomitant]
  4. QUESTRAN [Concomitant]
  5. PREVACID [Concomitant]
  6. COREG [Concomitant]
  7. PREMARIN [Concomitant]
  8. ASPIRIN [Concomitant]

REACTIONS (3)
  - ALANINE AMINOTRANSFERASE INCREASED [None]
  - BODY TEMPERATURE INCREASED [None]
  - MYALGIA [None]
